FAERS Safety Report 5201445-2 (Version None)
Quarter: 2007Q1

REPORT INFORMATION
  Report Type: 
  Country: None (occurrence: None)
  Receive Date: 20070108
  Receipt Date: 20061228
  Transmission Date: 20070707
  Serious: Yes (Hospitalization)
  Sender: FDA-Public Use
  Company Number: GB-PFIZER INC-2007000781

PATIENT
  Sex: Female

DRUGS (1)
  1. DETRUSITOL [Suspect]

REACTIONS (1)
  - LOWER RESPIRATORY TRACT INFECTION [None]
